FAERS Safety Report 13538438 (Version 1)
Quarter: 2017Q2

REPORT INFORMATION
  Report Type: Report from Study
  Country: None (occurrence: US)
  Receive Date: 20170512
  Receipt Date: 20170512
  Transmission Date: 20170830
  Serious: No
  Sender: FDA-Public Use
  Company Number: US-BIOVITRUM-2016US0492

PATIENT
  Age: 13 Year
  Sex: Female

DRUGS (1)
  1. ORFADIN [Suspect]
     Active Substance: NITISINONE
     Indication: TYROSINAEMIA
     Dosage: 15 MG BID (TWICE A DAY)
     Route: 048

REACTIONS (2)
  - Learning disability [Unknown]
  - Ultrasound liver abnormal [Unknown]

NARRATIVE: CASE EVENT DATE: 201605
